FAERS Safety Report 20866013 (Version 1)
Quarter: 2022Q2

REPORT INFORMATION
  Report Type: Report from Study
  Country: IT (occurrence: IT)
  Receive Date: 20220524
  Receipt Date: 20220524
  Transmission Date: 20220721
  Serious: Yes (Hospitalization)
  Sender: FDA-Public Use
  Company Number: None

PATIENT
  Age: 1 Year
  Sex: Female
  Weight: 11 kg

DRUGS (3)
  1. VINCRISTINE [Suspect]
     Active Substance: VINCRISTINE
     Indication: Renal neoplasm
     Route: 040
     Dates: start: 20220331
  2. COSMEGEN [Concomitant]
     Active Substance: DACTINOMYCIN
     Indication: Renal neoplasm
     Route: 040
     Dates: start: 20220331, end: 20220331
  3. DOXORUBICIN [Concomitant]
     Active Substance: DOXORUBICIN
     Dosage: 50 MG / 25 ML SOLUTION FOR INJECTION FOR INTRAVENOUS USE
     Route: 042
     Dates: start: 20220331, end: 20220331

REACTIONS (4)
  - Diarrhoea [Recovering/Resolving]
  - Hypogammaglobulinaemia [Recovering/Resolving]
  - Stomatitis [Recovering/Resolving]
  - Febrile neutropenia [Recovering/Resolving]

NARRATIVE: CASE EVENT DATE: 20220411
